FAERS Safety Report 7232570-2 (Version None)
Quarter: 2011Q1

REPORT INFORMATION
  Report Type: 
  Country: None (occurrence: None)
  Receive Date: 20110112
  Receipt Date: 20110112
  Transmission Date: 20110831
  Serious: Yes (Hospitalization)
  Sender: FDA-Public Use
  Company Number: None

PATIENT
  Age: 66 Year
  Sex: Female
  Weight: 45.8133 kg

DRUGS (1)
  1. CYMBALTA [Suspect]
     Indication: PERIPHERAL SENSORY NEUROPATHY
     Dates: start: 20061210, end: 20070106

REACTIONS (5)
  - NAUSEA [None]
  - PAIN [None]
  - DECREASED APPETITE [None]
  - LIVER INJURY [None]
  - WEIGHT DECREASED [None]
